FAERS Safety Report 7511355-3 (Version None)
Quarter: 2011Q2

REPORT INFORMATION
  Report Type: 
  Country: None (occurrence: None)
  Receive Date: 20110531
  Receipt Date: 20110518
  Transmission Date: 20111010
  Serious: Yes (Other)
  Sender: FDA-Public Use
  Company Number: FR-JNJFOC-20110509683

PATIENT
  Age: 34 Year
  Sex: Male

DRUGS (8)
  1. INTELENCE [Suspect]
     Indication: HIV INFECTION
     Route: 048
     Dates: start: 20101101, end: 20110129
  2. REYATAZ [Suspect]
     Indication: HIV INFECTION
     Route: 048
     Dates: start: 20110301
  3. NORVIR [Suspect]
     Route: 048
     Dates: start: 20110301
  4. TRUVADA [Suspect]
     Route: 048
     Dates: start: 20101101, end: 20110129
  5. TRUVADA [Suspect]
     Indication: HIV INFECTION
     Route: 048
     Dates: start: 20110301
  6. TRUVADA [Suspect]
     Route: 048
     Dates: start: 20100930
  7. PREZISTA [Suspect]
     Indication: HIV INFECTION
     Route: 048
     Dates: start: 20100930
  8. NORVIR [Suspect]
     Indication: HIV INFECTION
     Route: 048
     Dates: start: 20100930

REACTIONS (1)
  - TOXIC SKIN ERUPTION [None]
